FAERS Safety Report 12178010 (Version 2)
Quarter: 2016Q2

REPORT INFORMATION
  Report Type: Spontaneous
  Country: US (occurrence: US)
  Receive Date: 20160314
  Receipt Date: 20160523
  Transmission Date: 20160815
  Serious: Yes (Death, Other)
  Sender: FDA-Public Use
  Company Number: US-PFIZER INC-2016153056

PATIENT
  Age: 93 Year
  Sex: Female
  Weight: 49.43 kg

DRUGS (11)
  1. ARICEPT [Concomitant]
     Active Substance: DONEPEZIL HYDROCHLORIDE
     Indication: AMNESIA
     Dosage: STRENGTH UNK, 1X/DAY
     Route: 048
     Dates: start: 20150212
  2. TRAZODONE [Concomitant]
     Active Substance: TRAZODONE HYDROCHLORIDE
     Indication: DYSPEPSIA
  3. ARICEPT [Concomitant]
     Active Substance: DONEPEZIL HYDROCHLORIDE
     Indication: DEMENTIA
  4. TRAZODONE [Concomitant]
     Active Substance: TRAZODONE HYDROCHLORIDE
     Indication: AMNESIA
  5. MIRTAZAPINE. [Concomitant]
     Active Substance: MIRTAZAPINE
     Indication: ANXIETY
     Dosage: STRENGTH UNK, 1X/DAY
     Route: 048
     Dates: start: 20150212
  6. MIRTAZAPINE. [Concomitant]
     Active Substance: MIRTAZAPINE
     Indication: PARANOIA
  7. TRAZODONE [Concomitant]
     Active Substance: TRAZODONE HYDROCHLORIDE
     Indication: APPETITE DISORDER
     Dosage: STRENGTH UNK, 1X/DAY
     Route: 048
     Dates: start: 20150615
  8. PEPCID [Concomitant]
     Active Substance: FAMOTIDINE
     Indication: ABDOMINAL DISCOMFORT
     Dosage: STRENGTH UNK, 1X/DAY AT NIGHT
     Route: 048
     Dates: start: 20090201
  9. VFEND [Suspect]
     Active Substance: VORICONAZOLE
     Indication: PULMONARY MYCOSIS
     Dosage: STRENGTH UNK, 2X/DAY (1 TABLET IN THE MORNING AND 1 AT NIGHT)
     Dates: start: 201508
  10. VFEND [Suspect]
     Active Substance: VORICONAZOLE
     Dosage: 10 MG, 2X/DAY
     Dates: start: 20150915
  11. ASPIRIN /00002701/ [Concomitant]
     Active Substance: ASPIRIN
     Dosage: 81 MG, 1X/DAY
     Route: 048
     Dates: start: 20051201

REACTIONS (2)
  - Condition aggravated [Fatal]
  - Cardiac failure congestive [Fatal]
